FAERS Safety Report 17464589 (Version 1)
Quarter: 2020Q1

REPORT INFORMATION
  Report Type: Spontaneous
  Country: IT (occurrence: IT)
  Receive Date: 20200226
  Receipt Date: 20200226
  Transmission Date: 20200409
  Serious: Yes (Hospitalization)
  Sender: FDA-Public Use
  Company Number: IT-ELI_LILLY_AND_COMPANY-IT202002007791

PATIENT
  Age: 1 Month
  Sex: Male

DRUGS (1)
  1. HUMULIN N [Suspect]
     Active Substance: INSULIN HUMAN
     Indication: NEONATAL DIABETES MELLITUS
     Dosage: 2 INTERNATIONAL UNIT, UNKNOWN
     Route: 058
     Dates: start: 20200129, end: 20200129

REACTIONS (2)
  - Hypoglycaemia [Recovered/Resolved]
  - Wrong product administered [Recovered/Resolved]

NARRATIVE: CASE EVENT DATE: 20200129
